FAERS Safety Report 12714284 (Version 1)
Quarter: 2016Q3

REPORT INFORMATION
  Report Type: Spontaneous
  Country: US (occurrence: US)
  Receive Date: 20160905
  Receipt Date: 20160905
  Transmission Date: 20161109
  Serious: No
  Sender: FDA-Public Use
  Company Number: US-JAZZ-2016-US-008824

PATIENT
  Age: 61 Year
  Sex: Male
  Weight: 65.76 kg

DRUGS (23)
  1. COENZYME Q10 [Concomitant]
     Active Substance: UBIDECARENONE
  2. T3 [Concomitant]
     Active Substance: LIOTHYRONINE SODIUM
  3. XYREM [Suspect]
     Active Substance: SODIUM OXYBATE
     Indication: CHRONIC FATIGUE SYNDROME
     Dosage: 2.25 G, BID
     Route: 048
     Dates: start: 20160508
  4. ACETYL L-CARNITINE [Concomitant]
     Active Substance: ACETYLCARNITINE
  5. CHROMIUM PICOLINATE [Concomitant]
     Active Substance: CHROMIUM PICOLINATE
  6. MULTIVITAMINS [Concomitant]
     Active Substance: VITAMINS
  7. ALOE VERA [Concomitant]
     Active Substance: ALOE VERA LEAF
  8. ASHWAGANDHA [Concomitant]
     Active Substance: HERBALS
  9. CINNAMON. [Concomitant]
     Active Substance: CINNAMON
  10. TRAMADOL HCL [Concomitant]
     Active Substance: TRAMADOL HYDROCHLORIDE
  11. ATIVAN [Concomitant]
     Active Substance: LORAZEPAM
  12. CURAMIN [Concomitant]
     Active Substance: HERBALS
  13. DIGESTIVE ENZYMES [Concomitant]
     Active Substance: UNSPECIFIED INGREDIENT
  14. VITAMIN B COMPLEX [Concomitant]
     Active Substance: CYANOCOBALAMIN\DEXPANTHENOL\NIACINAMIDE\PYRIDOXINE HYDROCHLORIDE\RIBOFLAVIN 5^-PHOSPHATE SODIUM\THIAMINE HYDROCHLORIDE\VITAMIN B COMPLEX
  15. FISH OIL CONCENTRATE [Concomitant]
  16. L-THEANINE [Concomitant]
     Active Substance: DIETARY SUPPLEMENT
  17. VITAMIN B12 [Concomitant]
     Active Substance: CYANOCOBALAMIN
  18. DIFLUCAN [Concomitant]
     Active Substance: FLUCONAZOLE
  19. LIDODERM [Concomitant]
     Active Substance: LIDOCAINE
  20. PROBIOTICS [Concomitant]
     Active Substance: PROBIOTICS NOS
  21. ATENOLOL. [Concomitant]
     Active Substance: ATENOLOL
  22. MELATONIN [Concomitant]
     Active Substance: MELATONIN
  23. REVITALIZING SLEEP [Concomitant]

REACTIONS (2)
  - Palpitations [Unknown]
  - Anxiety [Unknown]

NARRATIVE: CASE EVENT DATE: 201605
